FAERS Safety Report 7972169-3 (Version None)
Quarter: 2011Q4

REPORT INFORMATION
  Report Type: 
  Country: None (occurrence: None)
  Receive Date: 20111212
  Receipt Date: 20111205
  Transmission Date: 20120403
  Serious: Yes (Other)
  Sender: FDA-Public Use
  Company Number: CA-AMGEN-CANSP2011054236

PATIENT
  Age: 51 Year
  Sex: Female
  Weight: 74.83 kg

DRUGS (7)
  1. ENBREL [Suspect]
     Indication: PSORIATIC ARTHROPATHY
     Dosage: 25 MG, QWK
     Route: 058
     Dates: start: 20110927, end: 20111001
  2. SYNTHROID [Concomitant]
     Dosage: 200 MG, QD
     Route: 048
  3. PANTOPRAZOLE [Concomitant]
     Indication: GASTROOESOPHAGEAL REFLUX DISEASE
     Dosage: 40 MG, QD
     Route: 048
  4. CITALOPRAM [Concomitant]
     Dosage: 40 MG, QD
  5. CELEXA [Concomitant]
     Indication: DEPRESSION
     Dosage: 40 MG, QD
     Route: 048
  6. CELEBREX [Concomitant]
     Indication: PSORIATIC ARTHROPATHY
     Dosage: 200 MG, QD
     Route: 048
  7. TOPIRAMATE [Concomitant]
     Dosage: 25 MG, BID

REACTIONS (2)
  - NAIL DISORDER [None]
  - HEADACHE [None]
